FAERS Safety Report 5694330-3 (Version None)
Quarter: 2008Q2

REPORT INFORMATION
  Report Type: 
  Country: None (occurrence: None)
  Receive Date: 20080402
  Receipt Date: 20080320
  Transmission Date: 20081010
  Serious: Yes (Other)
  Sender: FDA-Public Use
  Company Number: GXKR2008CA02855

PATIENT
  Age: 6 Month
  Sex: 0

DRUGS (2)
  1. METHYLPREDNISOLONE [Suspect]
     Indication: GRAFT VERSUS HOST DISEASE
     Dosage: CUMULATIVE DOSE OF 336.9 MG/KG
  2. CYCLOSPORINE [Concomitant]

REACTIONS (1)
  - VENTRICULAR HYPERTROPHY [None]
